FAERS Safety Report 8951066 (Version 1)
Quarter: 2012Q4

REPORT INFORMATION
  Report Type: 
  Country: US (occurrence: US)
  Receive Date: 20121207
  Receipt Date: 20121207
  Transmission Date: 20130627
  Serious: Yes (Other)
  Sender: FDA-Public Use
  Company Number: US-PFIZER INC-2012306211

PATIENT
  Age: 54 Year
  Sex: Male
  Weight: 68.03 kg

DRUGS (3)
  1. ADVIL [Suspect]
     Indication: BACK DISORDER
     Dosage: 200 mg, daily
     Route: 048
     Dates: start: 20121204
  2. IBUPROFEN [Concomitant]
     Indication: BACK DISORDER
     Dosage: 600 mg, daily
     Dates: start: 2012
  3. CELEBREX [Concomitant]
     Dosage: UNK

REACTIONS (3)
  - Hypersensitivity [Recovered/Resolved]
  - Urticaria [Recovered/Resolved]
  - Swelling [Recovered/Resolved]
